FAERS Safety Report 10560173 (Version 4)
Quarter: 2015Q2

REPORT INFORMATION
  Report Type: Spontaneous
  Country: JP (occurrence: JP)
  Receive Date: 20141103
  Receipt Date: 20150415
  Transmission Date: 20150821
  Serious: Yes (Hospitalization, Other)
  Sender: FDA-Public Use
  Company Number: PHHY2014JP137096

PATIENT
  Age: 3 Year
  Sex: Male
  Weight: 13.6 kg

DRUGS (7)
  1. EXJADE [Suspect]
     Active Substance: DEFERASIROX
     Dosage: 500 MG
     Route: 048
     Dates: start: 201305, end: 20140119
  2. DESFERAL [Concomitant]
     Active Substance: DEFEROXAMINE MESYLATE
     Indication: OFF LABEL USE
     Dosage: UNK
     Route: 042
     Dates: start: 20140120, end: 20140210
  3. EXJADE [Suspect]
     Active Substance: DEFERASIROX
     Dosage: 500 MG
     Route: 048
     Dates: start: 20140228
  4. EXJADE [Suspect]
     Active Substance: DEFERASIROX
     Indication: APLASTIC ANAEMIA
     Dosage: 250 MG, QD
     Route: 048
  5. FAMOTIDINE. [Suspect]
     Active Substance: FAMOTIDINE
     Indication: PROPHYLAXIS
     Dosage: 20 MG
     Route: 048
     Dates: start: 20131228, end: 20140109
  6. MINOPHAGEN C [Concomitant]
     Indication: PRODUCT USED FOR UNKNOWN INDICATION
     Dosage: UNK
     Route: 042
     Dates: start: 20140110, end: 20140210
  7. ANTITHYMOCYTE IMMUNOGLOBULIN (RABBIT) [Concomitant]
     Active Substance: LAPINE T-LYMPHOCYTE IMMUNE GLOBULIN
     Indication: PRODUCT USED FOR UNKNOWN INDICATION
     Dosage: 50 MG
     Route: 065

REACTIONS (5)
  - Drug-induced liver injury [Recovered/Resolved]
  - Alanine aminotransferase increased [Recovered/Resolved]
  - Serum ferritin increased [Recovering/Resolving]
  - Drug ineffective [Unknown]
  - Aspartate aminotransferase increased [Recovered/Resolved]

NARRATIVE: CASE EVENT DATE: 20140109
